FAERS Safety Report 5585213-8 (Version None)
Quarter: 2008Q1

REPORT INFORMATION
  Report Type: 
  Country: None (occurrence: None)
  Receive Date: 20080109
  Receipt Date: 20080103
  Transmission Date: 20080703
  Serious: Yes (Other)
  Sender: FDA-Public Use
  Company Number: PHBS2006BR09490

PATIENT
  Age: 37 Year
  Sex: Male
  Weight: 125 kg

DRUGS (10)
  1. CODATEN [Suspect]
     Indication: BACK PAIN
     Dosage: 3 DF/DAY AS MAXIMUM DOSE
     Route: 048
  2. RIVOTRIL [Concomitant]
  3. CITALOPRAM [Concomitant]
  4. LITHIUM CARBONATE [Concomitant]
  5. DIAZEPAM [Concomitant]
  6. ATENOLOL [Concomitant]
     Indication: HYPERTENSION
  7. HYDRALAZINE [Concomitant]
     Indication: HYPERTENSION
  8. HYDROCHLOROTHIAZIDE [Concomitant]
     Indication: HYPERTENSION
  9. FLURAZEPAM [Concomitant]
     Dosage: 30 MG, UNK
  10. ADALAT [Concomitant]
     Dosage: 40 MG, QD
     Dates: start: 20030101

REACTIONS (7)
  - BLOOD PRESSURE DECREASED [None]
  - DRUG INEFFECTIVE [None]
  - DRY MOUTH [None]
  - HYPOKINESIA [None]
  - INFARCTION [None]
  - LAZINESS [None]
  - PAIN [None]
